FAERS Safety Report 8366962-5 (Version None)
Quarter: 2012Q2

REPORT INFORMATION
  Report Type: 
  Country: None (occurrence: None)
  Receive Date: 20120517
  Receipt Date: 20120511
  Transmission Date: 20120825
  Serious: Yes (Other)
  Sender: FDA-Public Use
  Company Number: PHHY2010AR82401

PATIENT
  Sex: Female

DRUGS (2)
  1. TRILEPTAL [Suspect]
     Indication: CONVULSION
     Dosage: 300 MG, BID
     Dates: start: 20080101, end: 20080101
  2. TRILEPTAL [Suspect]

REACTIONS (5)
  - EYE MOVEMENT DISORDER [None]
  - SALIVARY HYPERSECRETION [None]
  - LACERATION [None]
  - CONVULSION [None]
  - BREAST CANCER [None]
